FAERS Safety Report 25987032 (Version 2)
Quarter: 2025Q4

REPORT INFORMATION
  Report Type: Spontaneous
  Country: CN (occurrence: CN)
  Receive Date: 20251103
  Receipt Date: 20251121
  Transmission Date: 20260117
  Serious: Yes (Hospitalization, Other)
  Sender: AMGEN
  Company Number: CN-AMGEN-CHNSP2025213101

PATIENT
  Age: 69 Year
  Sex: Female

DRUGS (4)
  1. KYPROLIS [Suspect]
     Active Substance: CARFILZOMIB
     Indication: Neoplasm malignant
     Dosage: 42 MILLIGRAM, QD (INTRAVENOUS INJECTION ONCE DAILY ON DAYS 1-2)
     Route: 040
     Dates: start: 20251002
  2. DARATUMUMAB [Concomitant]
     Active Substance: DARATUMUMAB
     Indication: Neoplasm malignant
     Dosage: 800 MILLIGRAM, QD, ONCE DAILY (D2)
     Route: 040
  3. DEXAMETHASONE [Concomitant]
     Active Substance: DEXAMETHASONE
     Indication: Neoplasm malignant
     Dosage: 20 MILLIGRAM, QD, ONCE DAILY ON DAY 1 AND 2
     Route: 040
  4. XARELTO [Concomitant]
     Active Substance: RIVAROXABAN
     Indication: Thrombosis
     Dosage: UNK
     Route: 065

REACTIONS (4)
  - Myelosuppression [Unknown]
  - White blood cell count decreased [Unknown]
  - Type 2 diabetes mellitus [Unknown]
  - Peripheral vein thrombosis [Unknown]

NARRATIVE: CASE EVENT DATE: 20251002
